FAERS Safety Report 8036671-0 (Version None)
Quarter: 2012Q1

REPORT INFORMATION
  Report Type: 
  Country: None (occurrence: None)
  Receive Date: 20120111
  Receipt Date: 20120110
  Transmission Date: 20120608
  Serious: Yes (Other)
  Sender: FDA-Public Use
  Company Number: US-ROCHE-794708

PATIENT
  Sex: Female
  Weight: 92.162 kg

DRUGS (2)
  1. ACCUTANE [Suspect]
     Indication: ACNE
     Route: 065
  2. ACCUTANE [Suspect]
     Route: 065
     Dates: start: 20000724, end: 20010524

REACTIONS (9)
  - IRRITABLE BOWEL SYNDROME [None]
  - ANAEMIA [None]
  - ARTHRALGIA [None]
  - DEPRESSION [None]
  - INFLAMMATORY BOWEL DISEASE [None]
  - BLOOD TRIGLYCERIDES INCREASED [None]
  - LIP DRY [None]
  - GASTROOESOPHAGEAL REFLUX DISEASE [None]
  - EPISTAXIS [None]
